FAERS Safety Report 23554685 (Version 1)
Quarter: 2024Q1

REPORT INFORMATION
  Report Type: Spontaneous
  Country: RO (occurrence: None)
  Receive Date: 20240222
  Receipt Date: 20240222
  Transmission Date: 20240409
  Serious: Yes (Death)
  Sender: FDA-Public Use
  Company Number: 2024A044240

PATIENT
  Age: 30681 Day
  Sex: Female

DRUGS (1)
  1. ONDEXXYA [Suspect]
     Active Substance: ANDEXANET ALFA
     Indication: Anticoagulant therapy
     Dosage: 200.0MG ONCE/SINGLE ADMINISTRATION
     Route: 042
     Dates: start: 20231211

REACTIONS (2)
  - Pneumonia [Fatal]
  - Respiratory failure [Fatal]
